FAERS Safety Report 12315170 (Version 1)
Quarter: 2016Q2

REPORT INFORMATION
  Report Type: Spontaneous
  Country: JP (occurrence: JP)
  Receive Date: 20160428
  Receipt Date: 20160428
  Transmission Date: 20160815
  Serious: Yes (Hospitalization)
  Sender: FDA-Public Use
  Company Number: JP-BAYER-2016-077639

PATIENT
  Age: 71 Year
  Sex: Male

DRUGS (2)
  1. BAYER ASPIRIN [Suspect]
     Active Substance: ASPIRIN
     Route: 048
  2. PRASUGREL [Interacting]
     Active Substance: PRASUGREL
     Route: 048

REACTIONS (4)
  - Labelled drug-drug interaction medication error [None]
  - Gastric haemorrhage [None]
  - Anaemia [None]
  - Gastric cancer [None]
